FAERS Safety Report 16794983 (Version 5)
Quarter: 2023Q1

REPORT INFORMATION
  Report Type: Spontaneous
  Country: US (occurrence: US)
  Receive Date: 20190911
  Receipt Date: 20230223
  Transmission Date: 20230417
  Serious: No
  Sender: FDA-Public Use
  Company Number: US-PFIZER INC-2019390798

PATIENT
  Sex: Female
  Weight: 69.8 kg

DRUGS (1)
  1. LYRICA [Suspect]
     Active Substance: PREGABALIN
     Indication: Fibromyalgia
     Dosage: 100 MG TID, 3X/DAY
     Route: 048
     Dates: start: 2019

REACTIONS (2)
  - Headache [Unknown]
  - Product prescribing error [Unknown]
